FAERS Safety Report 17674553 (Version 3)
Quarter: 2020Q3

REPORT INFORMATION
  Report Type: Report from Study
  Country: US (occurrence: US)
  Receive Date: 20200416
  Receipt Date: 20200715
  Transmission Date: 20201102
  Serious: No
  Sender: FDA-Public Use
  Company Number: NVSC2020US102502

PATIENT
  Age: 31 Year
  Sex: Male

DRUGS (2)
  1. COSENTYX [Suspect]
     Active Substance: SECUKINUMAB
     Indication: PSORIASIS
     Dosage: 150 MG (Q WEEKLY X 5 WEEKS THEN 150 MG Q 4 WEEKS), BENEATH THE SKIN, USUALLY VIA INJECTION
     Route: 058
     Dates: start: 20200315
  2. COSENTYX [Suspect]
     Active Substance: SECUKINUMAB
     Indication: PSORIATIC ARTHROPATHY

REACTIONS (5)
  - Fatigue [Unknown]
  - Herpes zoster [Recovering/Resolving]
  - Gastrointestinal disorder [Unknown]
  - Joint swelling [Recovering/Resolving]
  - Abdominal discomfort [Unknown]

NARRATIVE: CASE EVENT DATE: 20200315
